FAERS Safety Report 4585867-9 (Version None)
Quarter: 2005Q1

REPORT INFORMATION
  Report Type: 
  Country: None (occurrence: None)
  Receive Date: 20050217
  Receipt Date: 20041207
  Transmission Date: 20050727
  Serious: Yes (Life-Threatening, Hospitalization)
  Sender: FDA-Public Use
  Company Number: JP-GLAXOSMITHKLINE-B0359331A

PATIENT
  Age: 77 Year
  Sex: Female
  Weight: 40 kg

DRUGS (9)
  1. VALTREX [Suspect]
     Indication: HERPES ZOSTER
     Dosage: 1000MG PER DAY
     Route: 048
     Dates: start: 20041204, end: 20041205
  2. ALINAMIN-F [Concomitant]
     Dosage: 50MG PER DAY
     Route: 048
  3. PANTOSIN [Concomitant]
     Dosage: 2G PER DAY
     Route: 048
  4. GLAKAY [Concomitant]
     Dosage: 15MG PER DAY
     Route: 048
  5. CALSLOT [Concomitant]
     Dosage: 20MG PER DAY
     Route: 048
  6. RENAGEL [Concomitant]
     Dosage: 2250MG PER DAY
     Route: 048
  7. COMPRESSES [Concomitant]
  8. ANALGESIA [Concomitant]
  9. UNSPECIFIED MEDICATION [Concomitant]
     Indication: PAIN IN EXTREMITY
     Route: 061
     Dates: end: 20041204

REACTIONS (13)
  - ARRHYTHMIA [None]
  - ASTHENIA [None]
  - BLOOD CREATININE INCREASED [None]
  - BLOOD POTASSIUM INCREASED [None]
  - BLOOD UREA INCREASED [None]
  - BRAIN STEM HAEMORRHAGE [None]
  - COMA [None]
  - DELIRIUM [None]
  - DEPRESSED LEVEL OF CONSCIOUSNESS [None]
  - DYSKINESIA [None]
  - DYSLALIA [None]
  - DYSSTASIA [None]
  - TREMOR [None]
